FAERS Safety Report 21670847 (Version 1)
Quarter: 2022Q4

REPORT INFORMATION
  Report Type: Spontaneous
  Country: US (occurrence: US)
  Receive Date: 20221202
  Receipt Date: 20221202
  Transmission Date: 20230113
  Serious: Yes (Hospitalization)
  Sender: FDA-Public Use
  Company Number: US-STRIDES ARCOLAB LIMITED-2022SP016120

PATIENT
  Age: 22 Year
  Sex: Male

DRUGS (32)
  1. NYSTATIN [Suspect]
     Active Substance: NYSTATIN
     Indication: Osteomyelitis
     Dosage: UNK
     Route: 065
  2. NYSTATIN [Suspect]
     Active Substance: NYSTATIN
     Indication: Arthritis infective
  3. NYSTATIN [Suspect]
     Active Substance: NYSTATIN
     Indication: Candida infection
  4. FLUCYTOSINE [Suspect]
     Active Substance: FLUCYTOSINE
     Indication: Osteomyelitis
     Dosage: UNK
     Route: 065
  5. FLUCYTOSINE [Suspect]
     Active Substance: FLUCYTOSINE
     Indication: Arthritis infective
  6. FLUCYTOSINE [Suspect]
     Active Substance: FLUCYTOSINE
     Indication: Candida infection
  7. ERTAPENEM [Suspect]
     Active Substance: ERTAPENEM
     Indication: Osteomyelitis
     Dosage: UNK
     Route: 065
  8. ERTAPENEM [Suspect]
     Active Substance: ERTAPENEM
     Indication: Arthritis infective
  9. PIPERACILLIN AND TAZOBACTAM [Suspect]
     Active Substance: PIPERACILLIN SODIUM\TAZOBACTAM SODIUM
     Indication: Osteomyelitis
     Dosage: UNK
     Route: 065
  10. PIPERACILLIN AND TAZOBACTAM [Suspect]
     Active Substance: PIPERACILLIN SODIUM\TAZOBACTAM SODIUM
     Indication: Arthritis infective
  11. DAPTOMYCIN [Suspect]
     Active Substance: DAPTOMYCIN
     Indication: Osteomyelitis
     Dosage: UNK
     Route: 065
  12. DAPTOMYCIN [Suspect]
     Active Substance: DAPTOMYCIN
     Indication: Arthritis infective
  13. DAPTOMYCIN [Suspect]
     Active Substance: DAPTOMYCIN
     Indication: Enterococcal infection
  14. DAPTOMYCIN [Suspect]
     Active Substance: DAPTOMYCIN
     Indication: Stenotrophomonas infection
  15. DAPTOMYCIN [Suspect]
     Active Substance: DAPTOMYCIN
     Indication: Pneumonia klebsiella
  16. AMPICILLIN SODIUM\SULBACTAM SODIUM [Suspect]
     Active Substance: AMPICILLIN SODIUM\SULBACTAM SODIUM
     Indication: Osteomyelitis
     Dosage: UNK
     Route: 065
  17. AMPICILLIN SODIUM\SULBACTAM SODIUM [Suspect]
     Active Substance: AMPICILLIN SODIUM\SULBACTAM SODIUM
     Indication: Arthritis infective
  18. AMPICILLIN SODIUM\SULBACTAM SODIUM [Suspect]
     Active Substance: AMPICILLIN SODIUM\SULBACTAM SODIUM
     Indication: Enterococcal infection
  19. AMPICILLIN SODIUM\SULBACTAM SODIUM [Suspect]
     Active Substance: AMPICILLIN SODIUM\SULBACTAM SODIUM
     Indication: Stenotrophomonas infection
  20. AMPICILLIN SODIUM\SULBACTAM SODIUM [Suspect]
     Active Substance: AMPICILLIN SODIUM\SULBACTAM SODIUM
     Indication: Pneumonia klebsiella
  21. MICAFUNGIN [Suspect]
     Active Substance: MICAFUNGIN
     Indication: Osteomyelitis
     Dosage: UNK
     Route: 065
  22. MICAFUNGIN [Suspect]
     Active Substance: MICAFUNGIN
     Indication: Arthritis infective
  23. MICAFUNGIN [Suspect]
     Active Substance: MICAFUNGIN
     Indication: Candida infection
  24. MEROPENEM [Suspect]
     Active Substance: MEROPENEM
     Indication: Osteomyelitis
     Dosage: UNK
     Route: 065
  25. MEROPENEM [Suspect]
     Active Substance: MEROPENEM
     Indication: Arthritis infective
  26. AMPHOTERICIN B [Suspect]
     Active Substance: AMPHOTERICIN B
     Indication: Osteomyelitis
     Dosage: UNK
     Route: 065
  27. AMPHOTERICIN B [Suspect]
     Active Substance: AMPHOTERICIN B
     Indication: Arthritis infective
  28. AMPHOTERICIN B [Suspect]
     Active Substance: AMPHOTERICIN B
     Indication: Candida infection
  29. POSACONAZOLE [Suspect]
     Active Substance: POSACONAZOLE
     Indication: Osteomyelitis
     Dosage: UNK
     Route: 065
  30. POSACONAZOLE [Suspect]
     Active Substance: POSACONAZOLE
     Indication: Arthritis infective
  31. POSACONAZOLE [Suspect]
     Active Substance: POSACONAZOLE
     Indication: Coccidioidomycosis
  32. POSACONAZOLE [Suspect]
     Active Substance: POSACONAZOLE
     Indication: Histoplasmosis disseminated

REACTIONS (3)
  - Serum sickness [Unknown]
  - Drug ineffective [Unknown]
  - Off label use [Unknown]
